FAERS Safety Report 20168311 (Version 3)
Quarter: 2022Q1

REPORT INFORMATION
  Report Type: Report from Study
  Country: US (occurrence: US)
  Receive Date: 20211210
  Receipt Date: 20220202
  Transmission Date: 20220423
  Serious: Yes (Other)
  Sender: FDA-Public Use
  Company Number: US-SANOFI-00762442

PATIENT
  Age: 66 Year
  Sex: Male

DRUGS (2)
  1. DUPILUMAB [Suspect]
     Active Substance: DUPILUMAB
     Indication: Dermatitis atopic
     Dosage: 600 MG, 1X
     Route: 058
     Dates: start: 20210301, end: 20210301
  2. DUPILUMAB [Suspect]
     Active Substance: DUPILUMAB
     Dosage: 300 MG, QOW
     Route: 058
     Dates: start: 2021

REACTIONS (19)
  - Haemorrhage [Unknown]
  - Injection site pain [Not Recovered/Not Resolved]
  - Device difficult to use [Unknown]
  - Product preparation error [Unknown]
  - Dysstasia [Not Recovered/Not Resolved]
  - Erythema [Not Recovered/Not Resolved]
  - Arthropathy [Recovering/Resolving]
  - Rebound eczema [Not Recovered/Not Resolved]
  - Therapy cessation [Unknown]
  - Asthenia [Unknown]
  - Rehabilitation therapy [Recovered/Resolved]
  - Limb injury [Recovered/Resolved]
  - Injury [Recovered/Resolved]
  - Alopecia [Unknown]
  - Scab [Unknown]
  - Feeling abnormal [Unknown]
  - Skin disorder [Unknown]
  - Rash [Unknown]
  - Therapeutic response shortened [Unknown]

NARRATIVE: CASE EVENT DATE: 20210101
